FAERS Safety Report 19200772 (Version 1)
Quarter: 2021Q2

REPORT INFORMATION
  Report Type: Spontaneous
  Country: FI (occurrence: FI)
  Receive Date: 20210430
  Receipt Date: 20210430
  Transmission Date: 20210717
  Serious: Yes (Other)
  Sender: FDA-Public Use
  Company Number: FI-TAKEDA-2021TUS027192

PATIENT
  Age: 30 Year
  Sex: Female

DRUGS (1)
  1. BRINTELLIX [Suspect]
     Active Substance: VORTIOXETINE HYDROBROMIDE
     Indication: ANXIETY
     Dosage: 2.5 MILLIGRAM, QD
     Route: 048
     Dates: start: 20210316, end: 20210319

REACTIONS (7)
  - Rosacea [Unknown]
  - Anxiety [Unknown]
  - Wrong technique in product usage process [Unknown]
  - Restlessness [Unknown]
  - Insomnia [Unknown]
  - Product use in unapproved indication [Unknown]
  - Underdose [Unknown]

NARRATIVE: CASE EVENT DATE: 202103
